FAERS Safety Report 9122857 (Version 1)
Quarter: 2013Q1

REPORT INFORMATION
  Report Type: Spontaneous
  Country: US (occurrence: US)
  Receive Date: 20130227
  Receipt Date: 20130227
  Transmission Date: 20140127
  Serious: Yes (Other)
  Sender: FDA-Public Use
  Company Number: US-GLAXOSMITHKLINE-A0966051A

PATIENT
  Age: 57 Year
  Sex: Female
  Weight: 87.3 kg

DRUGS (1)
  1. VALTREX [Suspect]
     Indication: HERPES ZOSTER
     Dosage: 1G THREE TIMES PER DAY
     Route: 048
     Dates: start: 20120207

REACTIONS (2)
  - Anaphylactic reaction [Recovered/Resolved]
  - Urticaria [Unknown]
